FAERS Safety Report 4321111-5 (Version None)
Quarter: 2004Q1

REPORT INFORMATION
  Report Type: 
  Country: None (occurrence: None)
  Receive Date: 20040322
  Receipt Date: 20031127
  Transmission Date: 20041129
  Serious: Yes (Hospitalization)
  Sender: FDA-Public Use
  Company Number: FR-GLAXOSMITHKLINE-B0316346A

PATIENT
  Age: 68 Year
  Sex: Female
  Weight: 71.6 kg

DRUGS (2)
  1. ROSIGLITAZONE MALEATE [Suspect]
     Route: 048
     Dates: start: 20010215, end: 20031127
  2. TAHOR [Concomitant]
     Dosage: 10MG PER DAY
     Dates: start: 19900101

REACTIONS (4)
  - ABDOMINAL PAIN UPPER [None]
  - ANOREXIA [None]
  - GENERAL PHYSICAL HEALTH DETERIORATION [None]
  - METASTASES TO LIVER [None]
